FAERS Safety Report 13502075 (Version 1)
Quarter: 2017Q2

REPORT INFORMATION
  Report Type: Spontaneous
  Country: US (occurrence: US)
  Receive Date: 20170502
  Receipt Date: 20170502
  Transmission Date: 20170830
  Serious: Yes (Hospitalization, Other)
  Sender: FDA-Public Use
  Company Number: US-ROCHE-1925932

PATIENT
  Age: 40 Year
  Sex: Male

DRUGS (12)
  1. RITUXAN [Suspect]
     Active Substance: RITUXIMAB
     Indication: ACUTE LYMPHOCYTIC LEUKAEMIA
     Route: 065
     Dates: start: 20140115
  2. RITUXAN [Suspect]
     Active Substance: RITUXIMAB
     Route: 065
  3. METHOTREXATE. [Suspect]
     Active Substance: METHOTREXATE
     Dosage: 20 TABS) WEEKLY (HELD ON DAYS OF IT CHERNA)
     Route: 048
     Dates: start: 20141010
  4. PEG-L-ASPARAGINASE [Concomitant]
     Active Substance: PEGASPARGASE
     Indication: ACUTE LYMPHOCYTIC LEUKAEMIA
  5. HYDROCORTISONE. [Concomitant]
     Active Substance: HYDROCORTISONE
     Indication: ACUTE LYMPHOCYTIC LEUKAEMIA
     Route: 065
  6. METHOTREXATE. [Suspect]
     Active Substance: METHOTREXATE
     Dosage: 15 MG DAY 1 (AND DAY 29 ON THE FIRST 4 CYCLES OF MAINTENANCE).
     Route: 037
  7. METHOTREXATE. [Suspect]
     Active Substance: METHOTREXATE
     Dosage: TRIPLE THERAPY
     Route: 037
  8. MERCAPTOPURINE. [Concomitant]
     Active Substance: MERCAPTOPURINE
     Indication: ACUTE LYMPHOCYTIC LEUKAEMIA
     Dosage: 3 TABLETS DAILY
     Route: 065
  9. CYTARABINE. [Concomitant]
     Active Substance: CYTARABINE
     Indication: ACUTE LYMPHOCYTIC LEUKAEMIA
     Route: 065
  10. VINCRISTINE [Suspect]
     Active Substance: VINCRISTINE
     Indication: ACUTE LYMPHOCYTIC LEUKAEMIA
     Dosage: STARTED COURSE 5 ON 10/OCT/2014 (MAINTENANCE) USING VINCRISTINE 1.5 MG/M2?DAYS 1, 29, 57
     Route: 065
     Dates: start: 20140115
  11. DEXAMETHASONE. [Concomitant]
     Active Substance: DEXAMETHASONE
     Indication: ACUTE LYMPHOCYTIC LEUKAEMIA
     Dosage: 2 TABS AM, 1 TAB PM) DIVIDED BID DAYS 1 TO 5 MONTHLY
     Route: 065
     Dates: start: 20141010
  12. METHOTREXATE. [Suspect]
     Active Substance: METHOTREXATE
     Indication: ACUTE LYMPHOCYTIC LEUKAEMIA
     Dosage: ON 20/FEB/2014, HE INITIATED REMISSION CONSOLIDATION OR COURSE 2, ON15/MAY/2014, HE STARTED COURSE 3
     Route: 065
     Dates: start: 20140115

REACTIONS (3)
  - Viral myelitis [Unknown]
  - Acute lymphocytic leukaemia [Unknown]
  - Seizure [Unknown]
